FAERS Safety Report 15293960 (Version 1)
Quarter: 2018Q3

REPORT INFORMATION
  Report Type: Report from Study
  Country: US (occurrence: US)
  Receive Date: 20180820
  Receipt Date: 20180820
  Transmission Date: 20181010
  Serious: No
  Sender: FDA-Public Use
  Company Number: US-ACADIA PHARMACEUTICALS INC.-ACA-2018-008793

PATIENT
  Sex: Male

DRUGS (1)
  1. NUPLAZID [Suspect]
     Active Substance: PIMAVANSERIN TARTRATE
     Indication: PARKINSON^S DISEASE
     Dosage: 34 MG, QD
     Route: 048
     Dates: start: 20180414

REACTIONS (8)
  - Feeling abnormal [Unknown]
  - Oedema peripheral [Unknown]
  - Hallucination [Unknown]
  - Tremor [Unknown]
  - Muscular weakness [Unknown]
  - Feeling jittery [Unknown]
  - Constipation [Unknown]
  - Upper-airway cough syndrome [Unknown]
